FAERS Safety Report 9815328 (Version 2)
Quarter: 2014Q1

REPORT INFORMATION
  Report Type: Spontaneous
  Country: US (occurrence: US)
  Receive Date: 20140114
  Receipt Date: 20140128
  Transmission Date: 20141002
  Serious: No
  Sender: FDA-Public Use
  Company Number: US-009507513-1401USA001735

PATIENT
  Age: 64 Year
  Sex: Male

DRUGS (3)
  1. PEGINTRON [Suspect]
     Indication: HEPATITIS C
     Dosage: 0.5 ML, QW
     Route: 058
     Dates: start: 20131002
  2. RIBAVIRIN (WARRICK) [Suspect]
     Indication: HEPATITIS C
     Dosage: 2INA.M., 3INP.M., BID
     Route: 048
     Dates: start: 20131002
  3. VICTRELIS [Suspect]
     Indication: HEPATITIS C
     Dosage: 4 CAPSULES, Q8H
     Route: 048
     Dates: start: 20131106

REACTIONS (2)
  - Rash generalised [Unknown]
  - Pruritus [Unknown]
